FAERS Safety Report 9394451 (Version 1)
Quarter: 2013Q3

REPORT INFORMATION
  Report Type: Spontaneous
  Country: US (occurrence: US)
  Receive Date: 20130711
  Receipt Date: 20130711
  Transmission Date: 20140515
  Serious: No
  Sender: FDA-Public Use
  Company Number: US-PFIZER INC-2013200219

PATIENT
  Age: 49 Year
  Sex: Male
  Weight: 117.91 kg

DRUGS (7)
  1. VIAGRA [Suspect]
     Indication: ERECTILE DYSFUNCTION
     Dosage: 100 MG, AS NEEDED
  2. LISINOPRIL [Concomitant]
     Indication: HYPERTENSION
     Dosage: UNK, 1X/DAY
  3. ATENOLOL [Concomitant]
     Indication: HYPERTENSION
     Dosage: UNK, 1X/DAY
  4. DEPAKOTE [Concomitant]
     Indication: CONVULSION
     Dosage: 500 MG, 2X/DAY
  5. DEPAKOTE [Concomitant]
     Indication: EPILEPSY
  6. PHENOBARBITAL [Concomitant]
     Indication: CONVULSION
     Dosage: UNK, 1X/DAY
  7. PHENOBARBITAL [Concomitant]
     Indication: EPILEPSY

REACTIONS (3)
  - Drug effect incomplete [Unknown]
  - Drug ineffective [Unknown]
  - Incorrect dose administered [Unknown]
